FAERS Safety Report 23476834 (Version 1)
Quarter: 2024Q1

REPORT INFORMATION
  Report Type: Report from Study
  Country: US (occurrence: US)
  Receive Date: 20240204
  Receipt Date: 20240204
  Transmission Date: 20240409
  Serious: No
  Sender: FDA-Public Use
  Company Number: US-EXELIXIS-CABO-23064276

PATIENT
  Sex: Female

DRUGS (1)
  1. CABOMETYX [Suspect]
     Active Substance: CABOZANTINIB S-MALATE
     Indication: Renal cancer
     Dosage: 40 MG, QD
     Route: 048

REACTIONS (18)
  - Faeces hard [Unknown]
  - Skin exfoliation [Recovering/Resolving]
  - Burning sensation [Unknown]
  - Peripheral swelling [Unknown]
  - Tongue disorder [Recovered/Resolved]
  - Flatulence [Unknown]
  - Blister [Unknown]
  - Alopecia [Unknown]
  - Nausea [Recovering/Resolving]
  - Dermatitis acneiform [Unknown]
  - Rash macular [Recovered/Resolved]
  - Blood pressure increased [Not Recovered/Not Resolved]
  - Muscle spasms [Recovered/Resolved]
  - Fatigue [Unknown]
  - Vomiting [Unknown]
  - Pain in extremity [Unknown]
  - Decreased appetite [Unknown]
  - Constipation [Recovering/Resolving]
